FAERS Safety Report 9818964 (Version 1)
Quarter: 2013Q4

REPORT INFORMATION
  Report Type: Spontaneous
  Country: US (occurrence: None)
  Receive Date: 20131223
  Receipt Date: 20131223
  Transmission Date: 20140711
  Serious: No
  Sender: FDA-Public Use
  Company Number: 221313

PATIENT
  Sex: Female

DRUGS (1)
  1. PICATO (0.015%, GEL) [Suspect]
     Indication: ACTINIC KERATOSIS
     Route: 061
     Dates: start: 20130412, end: 20130414

REACTIONS (7)
  - Lip swelling [None]
  - Eye swelling [None]
  - Application site erythema [None]
  - Application site swelling [None]
  - Scab [None]
  - Application site scab [None]
  - Application site vesicles [None]
